FAERS Safety Report 14606245 (Version 1)
Quarter: 2018Q1

REPORT INFORMATION
  Report Type: Spontaneous
  Country: ES (occurrence: ES)
  Receive Date: 20180307
  Receipt Date: 20180307
  Transmission Date: 20180509
  Serious: Yes (Other)
  Sender: FDA-Public Use
  Company Number: ES-MERCK KGAA-2043145

PATIENT
  Age: 63 Year
  Sex: Female

DRUGS (11)
  1. NYSTATIN. [Suspect]
     Active Substance: NYSTATIN
     Route: 065
     Dates: end: 20180108
  2. NOVOTHYROX [Suspect]
     Active Substance: LEVOTHYROXINE SODIUM
     Indication: PRODUCT USED FOR UNKNOWN INDICATION
     Route: 065
  3. PREDNISONE. [Suspect]
     Active Substance: PREDNISONE
     Route: 065
  4. ADVAGRAF [Suspect]
     Active Substance: TACROLIMUS
     Route: 065
  5. RANITIDINE. [Suspect]
     Active Substance: RANITIDINE
     Route: 065
  6. CERTICAN [Suspect]
     Active Substance: EVEROLIMUS
     Route: 048
     Dates: start: 20171126
  7. SEPTRIN [Suspect]
     Active Substance: SULFAMETHOXAZOLE\TRIMETHOPRIM
  8. CEFUROXIME. [Suspect]
     Active Substance: CEFUROXIME
     Route: 065
     Dates: end: 20171226
  9. ADVAGRAF [Suspect]
     Active Substance: TACROLIMUS
     Route: 065
  10. ADALAT [Suspect]
     Active Substance: NIFEDIPINE
     Route: 065
  11. CERTICAN [Suspect]
     Active Substance: EVEROLIMUS
     Route: 048

REACTIONS (4)
  - Inflammation [Recovered/Resolved]
  - Cheilitis [Recovered/Resolved]
  - Toxic skin eruption [None]
  - Toxic skin eruption [Recovered/Resolved]

NARRATIVE: CASE EVENT DATE: 20180106
